FAERS Safety Report 25251521 (Version 1)
Quarter: 2025Q2

REPORT INFORMATION
  Report Type: Spontaneous
  Country: CN (occurrence: CN)
  Receive Date: 20250429
  Receipt Date: 20250429
  Transmission Date: 20250717
  Serious: Yes (Other)
  Sender: FRESENIUS KABI
  Company Number: CN-FreseniusKabi-FK202506295

PATIENT
  Age: 11 Year
  Sex: Male
  Weight: 55 kg

DRUGS (6)
  1. PROPOFOL [Suspect]
     Active Substance: PROPOFOL
     Indication: Induction of anaesthesia
     Dosage: FOA- INJECTION
     Dates: start: 20250423, end: 20250423
  2. DEXAMETHASONE SODIUM PHOSPHATE [Suspect]
     Active Substance: DEXAMETHASONE SODIUM PHOSPHATE
     Indication: Induction of anaesthesia
     Dosage: FOA- INJECTION
     Dates: start: 20250423, end: 20250423
  3. SUFENTANIL CITRATE [Suspect]
     Active Substance: SUFENTANIL CITRATE
     Indication: Induction of anaesthesia
     Dosage: FOA- INJECTION
     Dates: start: 20250423, end: 20250423
  4. CEFUROXIME SODIUM [Suspect]
     Active Substance: CEFUROXIME SODIUM
     Indication: Premedication
     Dosage: FOA- POWDER FOR INJECTION
     Route: 041
     Dates: start: 20250423, end: 20250423
  5. ROCURONIUM BROMIDE [Suspect]
     Active Substance: ROCURONIUM BROMIDE
     Indication: Induction of anaesthesia
     Dosage: FOA- INJECTION
     Dates: start: 20250423, end: 20250423
  6. SODIUM CHLORIDE [Concomitant]
     Active Substance: SODIUM CHLORIDE
     Indication: Vehicle solution use
     Dosage: FOA- INJECTION
     Route: 041
     Dates: start: 20250423, end: 20250423

REACTIONS (2)
  - Anaphylactic shock [Recovering/Resolving]
  - Rash [Recovering/Resolving]

NARRATIVE: CASE EVENT DATE: 20250423
